FAERS Safety Report 4281468-0 (Version None)
Quarter: 2004Q1

REPORT INFORMATION
  Report Type: 
  Country: None (occurrence: None)
  Receive Date: 20040108
  Receipt Date: 20031021
  Transmission Date: 20041129
  Serious: Yes (Other)
  Sender: FDA-Public Use
  Company Number: HQWYE411722OCT03

PATIENT
  Age: 54 Year
  Sex: Female
  Weight: 68.1 kg

DRUGS (1)
  1. PREMPRO [Suspect]
     Indication: HOT FLUSH
     Dosage: 0.45MG/1.5MG DAILY, ORAL
     Route: 048
     Dates: start: 20030923, end: 20031006

REACTIONS (1)
  - DEEP VEIN THROMBOSIS [None]
